FAERS Safety Report 6701214-8 (Version None)
Quarter: 2010Q2

REPORT INFORMATION
  Report Type: 
  Country: None (occurrence: None)
  Receive Date: 20100427
  Receipt Date: 20100416
  Transmission Date: 20101027
  Serious: Yes (Disabling)
  Sender: FDA-Public Use
  Company Number: 2009EU004821

PATIENT
  Age: 37 Year
  Sex: Female

DRUGS (8)
  1. PROTOPIC [Suspect]
     Indication: SEBORRHOEIC DERMATITIS
     Dosage: 1 DF, UID/QD; TOPICAL
     Route: 061
     Dates: start: 20090130, end: 20090401
  2. PROTOPIC [Suspect]
     Indication: SEBORRHOEIC DERMATITIS
     Dosage: 1 DF, UID/QD; TOPICAL
     Route: 061
     Dates: start: 20081201, end: 20091223
  3. PROTOPIC [Suspect]
     Indication: SEBORRHOEIC DERMATITIS
     Dosage: 1 DF, UID/QD; TOPICAL
     Route: 061
     Dates: start: 20090701, end: 20100130
  4. PROTOPIC [Suspect]
     Indication: SEBORRHOEIC DERMATITIS
     Dosage: 1 DF, UID/QD; TOPICAL; 2 DF, UID/QD, TOPICAL
     Route: 061
     Dates: start: 20090130, end: 20090401
  5. PROTOPIC [Suspect]
     Indication: SEBORRHOEIC DERMATITIS
     Dosage: 1 DF, UID/QD; TOPICAL; 2 DF, UID/QD, TOPICAL
     Route: 061
     Dates: start: 20081201, end: 20091223
  6. PROTOPIC [Suspect]
     Indication: SEBORRHOEIC DERMATITIS
     Dosage: 1 DF, UID/QD; TOPICAL; 2 DF, UID/QD, TOPICAL
     Route: 061
     Dates: start: 20090701, end: 20100130
  7. INFLUENZA VACCINE       (INFLUENZA VACCINE) [Concomitant]
  8. DESLORATADINE [Concomitant]

REACTIONS (6)
  - APPLICATION SITE OEDEMA [None]
  - APPLICATION SITE PAIN [None]
  - BURNING SENSATION [None]
  - DERMATITIS ATOPIC [None]
  - OFF LABEL USE [None]
  - REBOUND EFFECT [None]
